FAERS Safety Report 8140681-2 (Version None)
Quarter: 2012Q1

REPORT INFORMATION
  Report Type: 
  Country: None (occurrence: None)
  Receive Date: 20120216
  Receipt Date: 20120214
  Transmission Date: 20120608
  Serious: Yes (Other)
  Sender: FDA-Public Use
  Company Number: US-BAYER-2012-015041

PATIENT
  Sex: Female

DRUGS (2)
  1. YASMIN [Suspect]
     Indication: ACNE
     Dosage: UNK
     Dates: start: 20040301
  2. YAZ [Suspect]
     Indication: ACNE
     Dosage: UNK
     Dates: start: 20040301

REACTIONS (2)
  - CHOLECYSTITIS [None]
  - PAIN [None]
